FAERS Safety Report 17839093 (Version 1)
Quarter: 2020Q2

REPORT INFORMATION
  Report Type: Spontaneous
  Country: US (occurrence: US)
  Receive Date: 20200529
  Receipt Date: 20200529
  Transmission Date: 20200714
  Serious: Yes (Hospitalization, Other)
  Sender: FDA-Public Use
  Company Number: US-ACCORD-183502

PATIENT
  Age: 20 Year
  Sex: Male
  Weight: 58 kg

DRUGS (13)
  1. FENTANYL. [Suspect]
     Active Substance: FENTANYL
     Indication: INDUCTION OF ANAESTHESIA
  2. ROCURONIUM/ROCURONIUM BROMIDE [Suspect]
     Active Substance: ROCURONIUM BROMIDE
     Indication: INDUCTION OF ANAESTHESIA
  3. METOCLOPRAMIDE. [Suspect]
     Active Substance: METOCLOPRAMIDE
     Indication: NAUSEA
     Route: 042
  4. GABAPENTIN. [Concomitant]
     Active Substance: GABAPENTIN
     Indication: HEADACHE
  5. PROPOFOL. [Suspect]
     Active Substance: PROPOFOL
     Indication: INDUCTION OF ANAESTHESIA
  6. METOCLOPRAMIDE. [Suspect]
     Active Substance: METOCLOPRAMIDE
     Indication: ABDOMINAL PAIN
     Route: 042
  7. TOPIRAMATE. [Concomitant]
     Active Substance: TOPIRAMATE
     Indication: PARTIAL SEIZURES
  8. PARACETAMOL [Concomitant]
     Active Substance: ACETAMINOPHEN
  9. DESMOPRESSIN [Concomitant]
     Active Substance: DESMOPRESSIN
     Indication: PLATELET AGGREGATION
  10. ONDANSETRON [Suspect]
     Active Substance: ONDANSETRON
     Indication: PROPHYLAXIS OF NAUSEA AND VOMITING
  11. DEXAMETHASONE. [Concomitant]
     Active Substance: DEXAMETHASONE
  12. TOPIRAMATE. [Concomitant]
     Active Substance: TOPIRAMATE
     Indication: HEADACHE
  13. SEVOFLURANE. [Suspect]
     Active Substance: SEVOFLURANE
     Indication: MAINTENANCE OF ANAESTHESIA

REACTIONS (10)
  - Hypersensitivity [Unknown]
  - Hypertension [Recovering/Resolving]
  - Tachypnoea [Recovering/Resolving]
  - Serotonin syndrome [Recovering/Resolving]
  - Respiratory alkalosis [Recovering/Resolving]
  - Neuroleptic malignant syndrome [Recovering/Resolving]
  - Dystonia [Recovering/Resolving]
  - Tachycardia [Recovering/Resolving]
  - Hyperthermia malignant [Recovering/Resolving]
  - Extrapyramidal disorder [Recovering/Resolving]
